FAERS Safety Report 24742159 (Version 2)
Quarter: 2025Q3

REPORT INFORMATION
  Report Type: Report from Study
  Country: US (occurrence: US)
  Receive Date: 20241217
  Receipt Date: 20250803
  Transmission Date: 20251020
  Serious: Yes (Other)
  Sender: ALEXION PHARMACEUTICALS
  Company Number: 202411USA002473US

PATIENT
  Sex: Female

DRUGS (2)
  1. OLAPARIB [Suspect]
     Active Substance: OLAPARIB
     Indication: Ovarian cancer
     Dosage: 300 MILLIGRAM, BID
     Dates: start: 20241022
  2. LYRICA [Concomitant]
     Active Substance: PREGABALIN

REACTIONS (4)
  - Nausea [Not Recovered/Not Resolved]
  - Abdominal discomfort [Not Recovered/Not Resolved]
  - Dysgeusia [Not Recovered/Not Resolved]
  - Neuropathy peripheral [Unknown]
